FAERS Safety Report 23720144 (Version 1)
Quarter: 2024Q2

REPORT INFORMATION
  Report Type: Spontaneous
  Country: US (occurrence: US)
  Receive Date: 20240408
  Receipt Date: 20240408
  Transmission Date: 20240716
  Serious: No
  Sender: FDA-Public Use
  Company Number: US-ELI_LILLY_AND_COMPANY-US202404002628

PATIENT

DRUGS (4)
  1. MOUNJARO [Suspect]
     Active Substance: TIRZEPATIDE
     Indication: Glycosylated haemoglobin decreased
     Dosage: 5 MG, UNKNOWN
     Route: 058
     Dates: start: 20240328
  2. MOUNJARO [Suspect]
     Active Substance: TIRZEPATIDE
     Indication: Glycosylated haemoglobin decreased
     Dosage: 5 MG, UNKNOWN
     Route: 058
     Dates: start: 20240328
  3. MOUNJARO [Suspect]
     Active Substance: TIRZEPATIDE
     Indication: Glycosylated haemoglobin decreased
     Dosage: 5 MG, UNKNOWN
     Route: 058
     Dates: start: 20240328
  4. MOUNJARO [Suspect]
     Active Substance: TIRZEPATIDE
     Indication: Glycosylated haemoglobin decreased
     Dosage: 5 MG, UNKNOWN
     Route: 058
     Dates: start: 20240328

REACTIONS (1)
  - Lymph node pain [Recovered/Resolved]

NARRATIVE: CASE EVENT DATE: 20240329
